FAERS Safety Report 8414357-8 (Version None)
Quarter: 2012Q2

REPORT INFORMATION
  Report Type: 
  Country: None (occurrence: None)
  Receive Date: 20120605
  Receipt Date: 20120523
  Transmission Date: 20120825
  Serious: Yes (Other)
  Sender: FDA-Public Use
  Company Number: KR-MYLANLABS-2012S1010814

PATIENT
  Age: 60 Year
  Sex: Male

DRUGS (3)
  1. FLUOROURACIL [Suspect]
     Indication: COLON CANCER
     Dosage: 425 MG/M2 ON DAYS 1-5 EVERY 4 WEEKS
     Route: 065
  2. DOXIFLURIDINE [Concomitant]
     Indication: COLON CANCER
     Dosage: 100 MG DAILY
     Route: 065
  3. FOLINIC ACID [Concomitant]
     Indication: COLON CANCER
     Dosage: 20 MG/M2 ON DAYS 1-5 EVERY 4 WEEKS
     Route: 065

REACTIONS (1)
  - ACUTE MYELOID LEUKAEMIA [None]
